FAERS Safety Report 16430286 (Version 1)
Quarter: 2019Q2

REPORT INFORMATION
  Report Type: Spontaneous
  Country: AT (occurrence: AT)
  Receive Date: 20190614
  Receipt Date: 20190614
  Transmission Date: 20190711
  Serious: Yes (Other)
  Sender: FDA-Public Use
  Company Number: AT-ACCORD-132946

PATIENT
  Sex: Male

DRUGS (1)
  1. FINASTERIDE. [Suspect]
     Active Substance: FINASTERIDE
     Indication: ALOPECIA

REACTIONS (5)
  - Libido decreased [Not Recovered/Not Resolved]
  - Metabolic disorder [Unknown]
  - Angina pectoris [Unknown]
  - Palpitations [Unknown]
  - Fatigue [Not Recovered/Not Resolved]
